FAERS Safety Report 4442019-0 (Version None)
Quarter: 2004Q3

REPORT INFORMATION
  Report Type: 
  Country: None (occurrence: None)
  Receive Date: 20040903
  Receipt Date: 20040604
  Transmission Date: 20050211
  Serious: Yes (Other)
  Sender: FDA-Public Use
  Company Number: 2004UW11654

PATIENT
  Sex: Male

DRUGS (3)
  1. CRESTOR [Suspect]
     Indication: BLOOD CHOLESTEROL INCREASED
     Dosage: 20 MG QD PO
     Route: 048
     Dates: start: 20040401, end: 20040501
  2. AVALIDE [Concomitant]
  3. TOPROL-XL [Concomitant]

REACTIONS (1)
  - HYPERHIDROSIS [None]
